FAERS Safety Report 12783860 (Version 1)
Quarter: 2016Q3

REPORT INFORMATION
  Report Type: Spontaneous
  Country: AU (occurrence: AU)
  Receive Date: 20160927
  Receipt Date: 20160927
  Transmission Date: 20161109
  Serious: Yes (Hospitalization)
  Sender: FDA-Public Use
  Company Number: AU-ABBVIE-16K-008-1732734-00

PATIENT

DRUGS (1)
  1. DUODOPA [Suspect]
     Active Substance: CARBIDOPA\LEVODOPA
     Indication: PRODUCT USED FOR UNKNOWN INDICATION
     Dosage: 24H. MD:3MLS,CR:3.5MLS/HR(06-2200HRS),CR:2.5MLS/HR(22-0600HRS),ED:0.8MLS
     Route: 050
     Dates: start: 20140402

REACTIONS (4)
  - Constipation [Recovered/Resolved]
  - Abdominal pain [Unknown]
  - Device dislocation [Recovered/Resolved]
  - Stoma site pain [Unknown]
